FAERS Safety Report 14983438 (Version 1)
Quarter: 2018Q2

REPORT INFORMATION
  Report Type: Spontaneous
  Country: US (occurrence: US)
  Receive Date: 20180607
  Receipt Date: 20180607
  Transmission Date: 20180711
  Serious: No
  Sender: FDA-Public Use
  Company Number: US-JNJFOC-20180523194

PATIENT
  Age: 7 Decade
  Sex: Female

DRUGS (1)
  1. TYLENOL EXTRA STRENGTH [Suspect]
     Active Substance: ACETAMINOPHEN
     Indication: ANALGESIC THERAPY
     Dosage: 2-3 TIMES A DAY
     Route: 048
     Dates: start: 2005

REACTIONS (2)
  - Off label use [Unknown]
  - Product use in unapproved indication [Unknown]
